FAERS Safety Report 6421486-7 (Version None)
Quarter: 2009Q4

REPORT INFORMATION
  Report Type: 
  Country: None (occurrence: None)
  Receive Date: 20091030
  Receipt Date: 20091019
  Transmission Date: 20100525
  Serious: Yes (Hospitalization)
  Sender: FDA-Public Use
  Company Number: DE-PFIZER INC-2009284717

PATIENT
  Age: 70 Year

DRUGS (2)
  1. SUNITINIB MALATE [Suspect]
     Indication: METASTATIC RENAL CELL CARCINOMA
     Dosage: 50 MG, 1X/DAY
     Dates: start: 20080917, end: 20081007
  2. L-THYROXIN [Concomitant]
     Indication: HYPERTHYROIDISM

REACTIONS (1)
  - HYPERTENSIVE CRISIS [None]
